FAERS Safety Report 25664021 (Version 2)
Quarter: 2025Q3

REPORT INFORMATION
  Report Type: Spontaneous
  Country: CN (occurrence: CN)
  Receive Date: 20250811
  Receipt Date: 20250814
  Transmission Date: 20251021
  Serious: Yes (Life-Threatening, Other)
  Sender: SANOFI AVENTIS
  Company Number: CN-MLMSERVICE-20250728-PI593334-00249-1

PATIENT
  Age: 65 Year
  Sex: Male

DRUGS (8)
  1. OXALIPLATIN [Suspect]
     Active Substance: OXALIPLATIN
     Indication: Hepatocellular carcinoma
     Route: 013
     Dates: start: 20231016
  2. OXALIPLATIN [Suspect]
     Active Substance: OXALIPLATIN
     Route: 013
     Dates: start: 20240115
  3. OXALIPLATIN [Suspect]
     Active Substance: OXALIPLATIN
     Route: 013
     Dates: start: 20240531
  4. FLUOROURACIL [Suspect]
     Active Substance: FLUOROURACIL
     Indication: Hepatocellular carcinoma
     Route: 013
     Dates: start: 20231016
  5. FLUOROURACIL [Suspect]
     Active Substance: FLUOROURACIL
     Route: 013
     Dates: start: 20240115
  6. FLUOROURACIL [Suspect]
     Active Substance: FLUOROURACIL
     Route: 013
     Dates: start: 20240531
  7. SORAFENIB [Suspect]
     Active Substance: SORAFENIB
     Indication: Hepatocellular carcinoma
  8. REGORAFENIB [Suspect]
     Active Substance: REGORAFENIB
     Indication: Hepatocellular carcinoma

REACTIONS (14)
  - Hepatitis B reactivation [Unknown]
  - Acute hepatic failure [Unknown]
  - Chronic hepatic failure [Unknown]
  - Mental status changes [Unknown]
  - Altered state of consciousness [Unknown]
  - Jaundice [Unknown]
  - Decreased appetite [Unknown]
  - Nausea [Unknown]
  - Abdominal distension [Unknown]
  - Vomiting [Unknown]
  - Hepatocellular injury [Unknown]
  - Hyperbilirubinaemia [Unknown]
  - Fatigue [Unknown]
  - Off label use [Unknown]

NARRATIVE: CASE EVENT DATE: 20240501
